FAERS Safety Report 8476308-X (Version None)
Quarter: 2012Q2

REPORT INFORMATION
  Report Type: 
  Country: None (occurrence: None)
  Receive Date: 20120622
  Receipt Date: 20120620
  Transmission Date: 20120825
  Serious: Yes (Death)
  Sender: FDA-Public Use
  Company Number: 2012SP034085

PATIENT
  Age: 51 Year
  Sex: Male

DRUGS (6)
  1. DANAPAROID SODIUM (DANAPAROID SODIUM / 01353902 / ) [Suspect]
     Indication: HEPARIN-INDUCED THROMBOCYTOPENIA
     Dosage: 750 MG;SC
     Route: 058
     Dates: end: 20120309
  2. LANTUS [Concomitant]
  3. SITAGLIPTIN [Concomitant]
  4. PANTOPRAZOLE [Concomitant]
  5. ARANESP [Concomitant]
  6. MAGNESIUM SULFATE [Concomitant]

REACTIONS (1)
  - HAEMORRHAGE INTRACRANIAL [None]
